FAERS Safety Report 15893877 (Version 1)
Quarter: 2019Q1

REPORT INFORMATION
  Report Type: Spontaneous
  Country: FR (occurrence: FR)
  Receive Date: 20190131
  Receipt Date: 20190131
  Transmission Date: 20190417
  Serious: Yes (Hospitalization)
  Sender: FDA-Public Use
  Company Number: FR-AUROBINDO-AUR-APL-2019-003655

PATIENT
  Age: 76 Year
  Sex: Male
  Weight: 55 kg

DRUGS (12)
  1. ONDANSETRON [Suspect]
     Active Substance: ONDANSETRON
     Indication: PROPHYLAXIS OF NAUSEA AND VOMITING
     Dosage: J1 J5 OF EACH R-CHOP
     Route: 048
     Dates: start: 20180910, end: 20181030
  2. ENDOXAN [Suspect]
     Active Substance: CYCLOPHOSPHAMIDE
     Indication: DIFFUSE LARGE B-CELL LYMPHOMA STAGE IV
     Dosage: 1260 MILLIGRAM EVERY 3 WEEKS (3 CYCLES R-CHOP)
     Route: 041
     Dates: start: 20180910, end: 20181025
  3. VINCRISTINE TEVA [Suspect]
     Active Substance: VINCRISTINE
     Indication: DIFFUSE LARGE B-CELL LYMPHOMA STAGE IV
     Dosage: 2 MILLIGRAM EVERY 3 WEEKS (3 CYCLES R-CHOP)
     Route: 041
     Dates: start: 20180910, end: 20181025
  4. DOXORUBICINE TEVA [Suspect]
     Active Substance: DOXORUBICIN
     Indication: DIFFUSE LARGE B-CELL LYMPHOMA STAGE IV
     Dosage: 84 MILLIGRAM EVERY 3 WEEKS (3 CYCLES DE R-CHOP)
     Route: 041
     Dates: start: 20180910, end: 20181025
  5. PREDNISONE. [Concomitant]
     Active Substance: PREDNISONE
     Indication: DIFFUSE LARGE B-CELL LYMPHOMA STAGE IV
     Dosage: J1 J5 OF EACH R-CHOP
     Route: 048
     Dates: start: 20180910, end: 20181030
  6. MABTHERA [Concomitant]
     Active Substance: RITUXIMAB
     Indication: DIFFUSE LARGE B-CELL LYMPHOMA STAGE IV
     Dosage: 1400 MILLIGRAM EVERY 3 WEEKS (3 CYCLES OF R-CHOP)
     Route: 058
     Dates: start: 20180910, end: 20181025
  7. EMEND [Suspect]
     Active Substance: APREPITANT
     Indication: PROPHYLAXIS OF NAUSEA AND VOMITING
     Dosage: UNK (J1 J3 OF EACH R-CHOP)
     Route: 048
     Dates: start: 20180910, end: 20181027
  8. PARACETAMOL [Suspect]
     Active Substance: ACETAMINOPHEN
     Indication: PAIN
     Dosage: UNKNOWN
     Route: 048
  9. WELLVONE [Concomitant]
     Active Substance: ATOVAQUONE
     Indication: ANTIFUNGAL PROPHYLAXIS
     Dosage: 1500 MILLIGRAM, DAILY
     Route: 048
     Dates: start: 20180919
  10. VALACICLOVIR [Concomitant]
     Active Substance: VALACYCLOVIR HYDROCHLORIDE
     Indication: ANTIVIRAL PROPHYLAXIS
     Dosage: 1000 MILLIGRAM, DAILY
     Route: 048
     Dates: start: 20180919
  11. UROMITEXAN [Concomitant]
     Active Substance: MESNA
     Indication: BLADDER IRRITATION
     Dosage: UNK
     Route: 041
     Dates: start: 20180910, end: 20181025
  12. METHOTREXATE MYLAN [Concomitant]
     Active Substance: METHOTREXATE SODIUM
     Indication: DIFFUSE LARGE B-CELL LYMPHOMA STAGE IV
     Dosage: 15 MILLIGRAM EVERY 3 WEEKS
     Route: 037
     Dates: start: 20181002, end: 20181025

REACTIONS (1)
  - Fixed eruption [Recovered/Resolved]

NARRATIVE: CASE EVENT DATE: 20181027
